FAERS Safety Report 10256235 (Version 1)
Quarter: 2014Q2

REPORT INFORMATION
  Report Type: Spontaneous
  Country: IT (occurrence: IT)
  Receive Date: 20140624
  Receipt Date: 20140624
  Transmission Date: 20141212
  Serious: Yes (Other)
  Sender: FDA-Public Use
  Company Number: IT-TEVA-490158ISR

PATIENT
  Age: 38 Year
  Sex: Female

DRUGS (3)
  1. CARBOLITHIUM [Suspect]
  2. INVEGA 2 MG [Suspect]
     Route: 048
     Dates: start: 20140321, end: 20140621
  3. LEPONEX 25 MG [Suspect]
     Dates: start: 20140321, end: 20140621

REACTIONS (3)
  - Self injurious behaviour [Unknown]
  - Drug abuse [Unknown]
  - Intentional self-injury [None]
